FAERS Safety Report 24751905 (Version 1)
Quarter: 2024Q4

REPORT INFORMATION
  Report Type: Spontaneous
  Country: US (occurrence: US)
  Receive Date: 20241219
  Receipt Date: 20241219
  Transmission Date: 20250115
  Serious: No
  Sender: ABBVIE
  Company Number: US-ABBVIE-6052640

PATIENT
  Age: 74 Year
  Sex: Female

DRUGS (2)
  1. ESTRADIOL [Suspect]
     Active Substance: ESTRADIOL
     Indication: Vaginal disorder
     Dosage: TIME INTERVAL: 0.33333333 WEEKS: FORM STRENGTH 0.01%?AT BEDTIME
     Route: 067
     Dates: start: 20241103
  2. ESTRADIOL [Suspect]
     Active Substance: ESTRADIOL
     Indication: Atrophy

REACTIONS (2)
  - Malabsorption [Not Recovered/Not Resolved]
  - Product solubility abnormal [Not Recovered/Not Resolved]

NARRATIVE: CASE EVENT DATE: 20241103
